FAERS Safety Report 8026888-3 (Version None)
Quarter: 2012Q1

REPORT INFORMATION
  Report Type: 
  Country: None (occurrence: None)
  Receive Date: 20120106
  Receipt Date: 20120103
  Transmission Date: 20120608
  Serious: Yes (Other)
  Sender: FDA-Public Use
  Company Number: US-PFIZER INC-2011274528

PATIENT
  Sex: Male

DRUGS (1)
  1. TOVIAZ [Suspect]
     Indication: POLLAKIURIA
     Dosage: 4 MG, UNK
     Route: 048
     Dates: start: 20111001, end: 20111022

REACTIONS (1)
  - URINARY RETENTION [None]
